FAERS Safety Report 17285149 (Version 1)
Quarter: 2020Q1

REPORT INFORMATION
  Report Type: Spontaneous
  Country: FR (occurrence: FR)
  Receive Date: 20200117
  Receipt Date: 20200117
  Transmission Date: 20200409
  Serious: Yes (Hospitalization)
  Sender: FDA-Public Use
  Company Number: FR-MYLANLABS-2020M1004658

PATIENT
  Age: 23 Year
  Sex: Female
  Weight: 85 kg

DRUGS (5)
  1. C?FAZOLINE MYLAN 1 G, POUDRE POUR SOLUTION INJECTABLE (IM-IV) [Suspect]
     Active Substance: CEFAZOLIN SODIUM
     Indication: ANTIBIOTIC PROPHYLAXIS
     Dosage: 1 DOSAGE FORM, TOTAL
     Route: 042
     Dates: start: 20190429, end: 20190429
  2. ATRACURIUM HOSPIRA [Suspect]
     Active Substance: ATRACURIUM BESYLATE
     Indication: INDUCTION OF ANAESTHESIA
     Dosage: 90 MILLIGRAM, TOTAL
     Route: 042
     Dates: start: 20190429, end: 20190429
  3. MIDAZOLAM MYLAN [Suspect]
     Active Substance: MIDAZOLAM HYDROCHLORIDE
     Indication: INDUCTION OF ANAESTHESIA
     Dosage: 2 MILLIGRAM, TOTAL
     Route: 042
     Dates: start: 20190429, end: 20190429
  4. PROPOFOL MYLAN [Suspect]
     Active Substance: PROPOFOL
     Indication: INDUCTION OF ANAESTHESIA
     Dosage: 150 MILLIGRAM, TOTAL
     Route: 042
     Dates: start: 20190429, end: 20190429
  5. SUFENTANIL MYLAN [Suspect]
     Active Substance: SUFENTANIL
     Indication: INDUCTION OF ANAESTHESIA
     Dosage: 15 MICROGRAM, TOTAL
     Route: 042
     Dates: start: 20190429, end: 20190429

REACTIONS (3)
  - Erythema [Recovered/Resolved]
  - Tachycardia [Recovered/Resolved]
  - Hypersensitivity [Recovered/Resolved]

NARRATIVE: CASE EVENT DATE: 20190429
